FAERS Safety Report 9714107 (Version 1)
Quarter: 2013Q4

REPORT INFORMATION
  Report Type: Report from Study
  Country: US (occurrence: US)
  Receive Date: 20131126
  Receipt Date: 20131126
  Transmission Date: 20140711
  Serious: Yes (Hospitalization)
  Sender: FDA-Public Use
  Company Number: US-ACTELION-A-NJ2013-91801

PATIENT
  Age: 71 Year
  Sex: Female

DRUGS (6)
  1. TRACLEER [Suspect]
     Indication: PULMONARY ARTERIAL HYPERTENSION
     Dosage: 125 MG, BID
     Route: 048
     Dates: start: 201004
  2. FLONASE [Concomitant]
     Dosage: 1 SPRAY BID
  3. ADVAIR [Concomitant]
     Dosage: 1 PUFF BID
  4. SINGULAIR [Concomitant]
     Dosage: UNKNOWN DAILY
  5. LEVOTHYROXINE [Concomitant]
     Dosage: UNKNOWN/DAILY
  6. SYNVISC [Concomitant]

REACTIONS (3)
  - Chondropathy [Recovered/Resolved]
  - Arthralgia [Recovered/Resolved]
  - Knee arthroplasty [Recovered/Resolved]
